FAERS Safety Report 7588140-X (Version None)
Quarter: 2011Q2

REPORT INFORMATION
  Report Type: 
  Country: None (occurrence: None)
  Receive Date: 20110603
  Receipt Date: 20110303
  Transmission Date: 20111010
  Serious: No
  Sender: FDA-Public Use
  Company Number: 2011SP010279

PATIENT
  Sex: Male

DRUGS (6)
  1. CYMBALTA [Concomitant]
  2. SYNTHROID [Concomitant]
  3. SAPHRIS [Suspect]
     Indication: PRODUCT USED FOR UNKNOWN INDICATION
     Dosage: 5 MG; SL
     Route: 060
     Dates: start: 20110216, end: 20110217
  4. RITALIN [Concomitant]
  5. LYRICA [Concomitant]
  6. FISH OIL [Concomitant]

REACTIONS (5)
  - DYSKINESIA [None]
  - ABASIA [None]
  - DIZZINESS [None]
  - AGITATION [None]
  - OEDEMA PERIPHERAL [None]
